FAERS Safety Report 9221838 (Version 3)
Quarter: 2013Q2

REPORT INFORMATION
  Report Type: Spontaneous
  Country: IE (occurrence: IE)
  Receive Date: 20130410
  Receipt Date: 20130524
  Transmission Date: 20140414
  Serious: Yes (Hospitalization)
  Sender: FDA-Public Use
  Company Number: IE-VERTEX PHARMACEUTICALS INC.-2013-004623

PATIENT
  Age: 16 Year
  Sex: Female

DRUGS (10)
  1. KALYDECO [Suspect]
     Indication: CYSTIC FIBROSIS
     Dosage: 150 MG, BID
     Route: 048
     Dates: start: 20130327, end: 20130408
  2. KALYDECO [Suspect]
     Dosage: UNK
     Dates: start: 20130422
  3. VENTOLIN [Concomitant]
  4. PULMOZYME [Concomitant]
  5. TOBE [Concomitant]
  6. TOBRAMYCIN [Concomitant]
  7. CREON [Concomitant]
  8. VITAMIN D [Concomitant]
  9. ZITHROMAX [Concomitant]
  10. AQUADEKS [Concomitant]

REACTIONS (13)
  - Viral rash [Recovered/Resolved]
  - Viral infection [Recovered/Resolved]
  - Malaise [Recovered/Resolved]
  - Pyrexia [Recovered/Resolved]
  - Fatigue [Not Recovered/Not Resolved]
  - Vomiting [Unknown]
  - Pruritus [Unknown]
  - Sneezing [Unknown]
  - Nausea [Not Recovered/Not Resolved]
  - Dizziness [Unknown]
  - Nasal congestion [Not Recovered/Not Resolved]
  - Rhinorrhoea [Unknown]
  - Oropharyngeal pain [Unknown]
